FAERS Safety Report 4801813-4 (Version None)
Quarter: 2005Q4

REPORT INFORMATION
  Report Type: 
  Country: None (occurrence: None)
  Receive Date: 20051014
  Receipt Date: 20051014
  Transmission Date: 20060501
  Serious: Yes (Other)
  Sender: FDA-Public Use
  Company Number: None

PATIENT
  Age: 76 Year
  Sex: Female

DRUGS (2)
  1. MORPHINE SULFATE [Suspect]
     Indication: MULTIPLE SCLEROSIS
     Dosage: 2 MG/ML CONTINUOUS SQ
     Route: 058
     Dates: start: 20051010, end: 20051012
  2. MORPHINE SULFATE [Suspect]
     Indication: SPINAL COLUMN STENOSIS
     Dosage: 2 MG/ML CONTINUOUS SQ
     Route: 058
     Dates: start: 20051010, end: 20051012

REACTIONS (1)
  - RASH [None]
